FAERS Safety Report 21895073 (Version 1)
Quarter: 2023Q1

REPORT INFORMATION
  Report Type: Report from Study
  Country: US (occurrence: US)
  Receive Date: 20230122
  Receipt Date: 20230122
  Transmission Date: 20230418
  Serious: Yes (Other)
  Sender: FDA-Public Use
  Company Number: US-SUNPHARMA-2023R1-374083AA

PATIENT
  Age: 47 Year
  Sex: Male

DRUGS (2)
  1. GEMCITABINE [Suspect]
     Active Substance: GEMCITABINE
     Indication: Autologous haematopoietic stem cell transplant
     Dosage: 6000 MILLIGRAM/SQ. METER
     Route: 065
  2. CARMUSTINE [Suspect]
     Active Substance: CARMUSTINE
     Indication: Autologous haematopoietic stem cell transplant
     Dosage: 525 MILLIGRAM/SQ. METER
     Route: 065

REACTIONS (3)
  - Exposure to toxic agent [Unknown]
  - Disease risk factor [Unknown]
  - Pulmonary toxicity [Unknown]
